FAERS Safety Report 17670547 (Version 1)
Quarter: 2020Q2

REPORT INFORMATION
  Report Type: Spontaneous
  Country: US (occurrence: US)
  Receive Date: 20200415
  Receipt Date: 20200415
  Transmission Date: 20200713
  Serious: No
  Sender: FDA-Public Use
  Company Number: None

PATIENT
  Sex: Female

DRUGS (2)
  1. OXYTOCIN (PITOCIN) [Concomitant]
     Dates: start: 20200223, end: 20200223
  2. PITOCIN [Suspect]
     Active Substance: OXYTOCIN
     Indication: DELIVERY
     Route: 041
     Dates: start: 20200223, end: 20200223

REACTIONS (2)
  - Therapeutic response decreased [None]
  - Product quality issue [None]

NARRATIVE: CASE EVENT DATE: 20200223
